FAERS Safety Report 23215644 (Version 1)
Quarter: 2023Q4

REPORT INFORMATION
  Report Type: Spontaneous
  Country: RU (occurrence: RU)
  Receive Date: 20231122
  Receipt Date: 20231122
  Transmission Date: 20240109
  Serious: Yes (Other)
  Sender: FDA-Public Use
  Company Number: RU-SANDOZ-SDZ2023RU053934

PATIENT
  Sex: Female

DRUGS (12)
  1. DOCETAXEL [Suspect]
     Active Substance: DOCETAXEL\DOCETAXEL ANHYDROUS
     Indication: Breast cancer female
     Dosage: UNK
     Route: 065
  2. DOCETAXEL [Suspect]
     Active Substance: DOCETAXEL\DOCETAXEL ANHYDROUS
     Indication: Metastases to lung
  3. DOCETAXEL [Suspect]
     Active Substance: DOCETAXEL\DOCETAXEL ANHYDROUS
     Indication: Metastasis
  4. PERTUZUMAB [Suspect]
     Active Substance: PERTUZUMAB
     Indication: Breast cancer female
     Dosage: UNK
     Route: 065
  5. PERTUZUMAB [Suspect]
     Active Substance: PERTUZUMAB
     Indication: Metastases to lung
  6. PERTUZUMAB [Suspect]
     Active Substance: PERTUZUMAB
     Indication: Metastasis
  7. TAMOXIFEN [Suspect]
     Active Substance: TAMOXIFEN
     Indication: Breast cancer female
     Dosage: UNK
     Route: 065
  8. TAMOXIFEN [Suspect]
     Active Substance: TAMOXIFEN
     Indication: Metastases to lung
  9. TAMOXIFEN [Suspect]
     Active Substance: TAMOXIFEN
     Indication: Metastasis
  10. TRASTUZUMAB [Suspect]
     Active Substance: TRASTUZUMAB
     Indication: Breast cancer female
     Dosage: UNK
     Route: 065
  11. TRASTUZUMAB [Suspect]
     Active Substance: TRASTUZUMAB
     Indication: Metastases to lung
  12. TRASTUZUMAB [Suspect]
     Active Substance: TRASTUZUMAB
     Indication: Metastasis

REACTIONS (4)
  - Neutropenia [Unknown]
  - Polyneuropathy [Unknown]
  - Disease progression [Unknown]
  - Skin toxicity [Unknown]
